FAERS Safety Report 9278648 (Version 1)
Quarter: 2013Q2

REPORT INFORMATION
  Report Type: Spontaneous
  Country: US (occurrence: US)
  Receive Date: 20130508
  Receipt Date: 20130508
  Transmission Date: 20140414
  Serious: No
  Sender: FDA-Public Use
  Company Number: US-PFIZER INC-2013140473

PATIENT
  Age: 70 Year
  Sex: Female
  Weight: 77.1 kg

DRUGS (2)
  1. DETROL LA [Suspect]
     Dosage: 4 MG, SINGLE
     Dates: start: 20130503, end: 20130503
  2. PROTONIX [Suspect]
     Indication: ABDOMINAL PAIN UPPER
     Dosage: UNK

REACTIONS (3)
  - Back pain [Not Recovered/Not Resolved]
  - Abdominal pain upper [Not Recovered/Not Resolved]
  - Drug ineffective [Unknown]
